FAERS Safety Report 5777502-9 (Version None)
Quarter: 2008Q2

REPORT INFORMATION
  Report Type: 
  Country: None (occurrence: None)
  Receive Date: 20080618
  Receipt Date: 20080609
  Transmission Date: 20081010
  Serious: Yes (Hospitalization)
  Sender: FDA-Public Use
  Company Number: FR-AMGEN-UK274714

PATIENT
  Sex: Female

DRUGS (19)
  1. ARANESP [Suspect]
     Indication: RENAL FAILURE CHRONIC
     Route: 065
  2. CALCIPARINE [Concomitant]
     Route: 065
  3. AUGMENTIN '250' [Concomitant]
     Route: 065
     Dates: start: 20080226, end: 20080318
  4. OFLOCET [Concomitant]
     Route: 065
     Dates: end: 20080318
  5. PANTOPRAZOLE SODIUM [Concomitant]
     Route: 065
     Dates: end: 20080327
  6. IMUREL [Concomitant]
     Route: 065
     Dates: start: 20080325
  7. LASIX [Concomitant]
     Route: 065
  8. SOLUPRED [Concomitant]
     Route: 065
  9. NEORAL [Concomitant]
     Route: 065
  10. ROCALTROL [Concomitant]
     Route: 065
  11. IRBESARTAN [Concomitant]
     Route: 065
  12. AMLOR [Concomitant]
     Route: 065
  13. DETENSIEL [Concomitant]
     Route: 065
  14. HYPERIUM [Concomitant]
     Route: 065
  15. HALDOL [Concomitant]
     Route: 065
  16. NOZINAN [Concomitant]
     Route: 065
  17. ATARAX [Concomitant]
     Route: 065
  18. HEPARIN SODIUM [Concomitant]
     Route: 042
  19. ASPIRIN AND DIPYRIDAMOLE [Concomitant]
     Route: 065

REACTIONS (4)
  - CHOLESTASIS [None]
  - DRUG ERUPTION [None]
  - EOSINOPHILIA [None]
  - THROMBOCYTOPENIA [None]
